FAERS Safety Report 12126628 (Version 2)
Quarter: 2016Q2

REPORT INFORMATION
  Report Type: Spontaneous
  Country: US (occurrence: US)
  Receive Date: 20160229
  Receipt Date: 20160426
  Transmission Date: 20160815
  Serious: No
  Sender: FDA-Public Use
  Company Number: ALCN2016US001553

PATIENT
  Sex: Male
  Weight: 119.27 kg

DRUGS (1)
  1. PAZEO [Suspect]
     Active Substance: OLOPATADINE HYDROCHLORIDE
     Indication: PRODUCT USED FOR UNKNOWN INDICATION
     Dosage: UNK
     Route: 047

REACTIONS (4)
  - Device damage [Recovered/Resolved]
  - Scleral disorder [Recovered/Resolved]
  - Corneal abrasion [Recovered/Resolved]
  - Intentional product misuse [Recovered/Resolved]
